FAERS Safety Report 14211079 (Version 3)
Quarter: 2018Q2

REPORT INFORMATION
  Report Type: Spontaneous
  Country: DE (occurrence: DE)
  Receive Date: 20171121
  Receipt Date: 20180501
  Transmission Date: 20180711
  Serious: Yes (Death)
  Sender: FDA-Public Use
  Company Number: PHHY2017DE170423

PATIENT
  Age: 53 Year
  Sex: Male

DRUGS (4)
  1. ENZALUTAMIDE [Concomitant]
     Active Substance: ENZALUTAMIDE
     Indication: PROSTATE CANCER METASTATIC
     Route: 065
  2. ABIRATERONE [Concomitant]
     Active Substance: ABIRATERONE
     Indication: PROSTATE CANCER METASTATIC
     Dosage: UNK
     Route: 065
  3. DOCETAXEL. [Suspect]
     Active Substance: DOCETAXEL
     Indication: HORMONE-REFRACTORY PROSTATE CANCER
     Dosage: 75 MG/M2, UNK
     Route: 065
  4. DOCETAXEL. [Suspect]
     Active Substance: DOCETAXEL
     Indication: METASTASIS

REACTIONS (1)
  - Neutropenia [Fatal]
